FAERS Safety Report 16528656 (Version 1)
Quarter: 2019Q3

REPORT INFORMATION
  Report Type: Report from Study
  Country: CA (occurrence: CA)
  Receive Date: 20190703
  Receipt Date: 20190703
  Transmission Date: 20191004
  Serious: Yes (Other)
  Sender: FDA-Public Use
  Company Number: CA-GLAXOSMITHKLINE-CA2019AMR117344

PATIENT
  Sex: Male

DRUGS (2)
  1. MEPOLIZUMAB [Suspect]
     Active Substance: MEPOLIZUMAB
     Indication: ASTHMA
     Dosage: 100 MG, Z, MONTHLY
     Route: 042
     Dates: start: 20170309
  2. CEFZIL [Suspect]
     Active Substance: CEFPROZIL
     Indication: RESPIRATORY TRACT INFECTION
     Dosage: UNK UNK, BID

REACTIONS (2)
  - Respiratory tract infection [Recovering/Resolving]
  - Nasopharyngitis [Unknown]
